FAERS Safety Report 9095356 (Version 1)
Quarter: 2013Q1

REPORT INFORMATION
  Report Type: Spontaneous
  Country: US (occurrence: None)
  Receive Date: 20130123
  Receipt Date: 20130123
  Transmission Date: 20140127
  Serious: Yes (Hospitalization)
  Sender: FDA-Public Use
  Company Number: DSA_62014_2013

PATIENT
  Sex: Female

DRUGS (4)
  1. XENAZINE [Suspect]
     Indication: HUNTINGTON^S DISEASE
     Dosage: 12.5 MG IN A.M. AND 25 MG IN P.M.
     Route: 048
     Dates: start: 20121230, end: 201301
  2. NEURONTIN [Suspect]
     Route: 048
     Dates: start: 20130113, end: 20130113
  3. AMBIEN [Suspect]
     Indication: PRODUCT USED FOR UNKNOWN INDICATION
     Route: 048
     Dates: start: 20130113, end: 20130113
  4. KLONOPIN [Suspect]
     Indication: PRODUCT USED FOR UNKNOWN INDICATION
     Dates: start: 20130113, end: 20130113

REACTIONS (5)
  - Wrong drug administered [None]
  - Chorea [None]
  - Disease recurrence [None]
  - Fall [None]
  - Skin injury [None]
